FAERS Safety Report 5285904-2 (Version None)
Quarter: 2007Q1

REPORT INFORMATION
  Report Type: 
  Country: None (occurrence: None)
  Receive Date: 20070329
  Receipt Date: 20070313
  Transmission Date: 20070707
  Serious: Yes (Hospitalization)
  Sender: FDA-Public Use
  Company Number: 2007000461

PATIENT
  Age: 37 Year
  Sex: Female
  Weight: 125.2 kg

DRUGS (7)
  1. ERLOTINIB (TABLET) [Suspect]
     Indication: NEOPLASM MALIGNANT
     Dosage: 150 MG (QD), ORAL
     Route: 048
     Dates: start: 20070201
  2. BEVACIZUMAG (INJECTION FOR INFUSION) [Suspect]
     Indication: NEOPLASM MALIGNANT
     Dosage: 15 MG/KG (Q3W), INTRAVENOUS
     Route: 042
     Dates: start: 20070201
  3. IBUPROFEN [Concomitant]
  4. PERCOCET [Concomitant]
  5. RADIATION THERAPY [Concomitant]
  6. PACLITAXEL [Suspect]
     Indication: NEOPLASM MALIGNANT
     Dosage: 175 MG/M2 (Q3W), INTRAVENOUS
     Route: 042
     Dates: start: 20070201
  7. CARBOPLATIN [Suspect]
     Indication: NEOPLASM MALIGNANT
     Dosage: 1150 MG (Q3W), INTRAVENOUS
     Route: 042
     Dates: start: 20070201

REACTIONS (2)
  - BONE DISORDER [None]
  - PAIN [None]
